FAERS Safety Report 11347733 (Version 1)
Quarter: 2015Q3

REPORT INFORMATION
  Report Type: Spontaneous
  Country: US (occurrence: US)
  Receive Date: 20150806
  Receipt Date: 20150806
  Transmission Date: 20151125
  Serious: Yes (Hospitalization, Other)
  Sender: FDA-Public Use
  Company Number: US-ASTRAZENECA-2015SE72399

PATIENT
  Age: 22266 Day
  Sex: Male
  Weight: 117.9 kg

DRUGS (8)
  1. ASPIRIN. [Concomitant]
     Active Substance: ASPIRIN
     Indication: VIRAL CARDIOMYOPATHY
     Route: 048
     Dates: start: 200907
  2. LASIX [Concomitant]
     Active Substance: FUROSEMIDE
     Indication: CARDIAC FAILURE
     Route: 048
     Dates: start: 200907
  3. CARVEDILOL. [Concomitant]
     Active Substance: CARVEDILOL
     Indication: VIRAL CARDIOMYOPATHY
     Route: 048
     Dates: start: 200907
  4. ALDACTONE [Concomitant]
     Active Substance: SPIRONOLACTONE
     Indication: VIRAL CARDIOMYOPATHY
     Route: 048
     Dates: start: 200907
  5. FISH OIL [Concomitant]
     Active Substance: FISH OIL
     Indication: VIRAL CARDIOMYOPATHY
     Route: 048
     Dates: start: 200907
  6. BRILINTA [Suspect]
     Active Substance: TICAGRELOR
     Indication: STENT PLACEMENT
     Route: 048
     Dates: start: 20150717, end: 20150726
  7. LASIX [Concomitant]
     Active Substance: FUROSEMIDE
     Indication: VIRAL CARDIOMYOPATHY
     Route: 048
     Dates: start: 200907
  8. ALLOPURINOL. [Concomitant]
     Active Substance: ALLOPURINOL
     Indication: GOUT
     Route: 048

REACTIONS (5)
  - Chest discomfort [Unknown]
  - Heart rate increased [Unknown]
  - Drug intolerance [Unknown]
  - Atelectasis [Unknown]
  - Dyspnoea [Not Recovered/Not Resolved]

NARRATIVE: CASE EVENT DATE: 20150717
